FAERS Safety Report 6505362-7 (Version None)
Quarter: 2009Q4

REPORT INFORMATION
  Report Type: 
  Country: None (occurrence: None)
  Receive Date: 20091218
  Receipt Date: 20091208
  Transmission Date: 20100525
  Serious: Yes (Other)
  Sender: FDA-Public Use
  Company Number: GB-ROCHE-651861

PATIENT
  Age: 14 Year
  Sex: Female

DRUGS (7)
  1. MYCOPHENOLATE MOFETIL [Suspect]
     Route: 065
  2. MYCOPHENOLATE MOFETIL [Suspect]
     Route: 065
  3. TACROLIMUS [Suspect]
     Route: 065
  4. TACROLIMUS [Suspect]
     Dosage: REDUCED DOSE
     Route: 065
  5. PREDNISOLONE [Concomitant]
  6. CYSTEAMINE [Concomitant]
  7. ENALAPRIL [Concomitant]

REACTIONS (2)
  - ENCEPHALOPATHY [None]
  - RENAL TUBULAR NECROSIS [None]
